FAERS Safety Report 9682853 (Version 2)
Quarter: 2013Q4

REPORT INFORMATION
  Report Type: Spontaneous
  Country: FR (occurrence: FR)
  Receive Date: 20131112
  Receipt Date: 20131112
  Transmission Date: 20140711
  Serious: Yes (Disabling)
  Sender: FDA-Public Use
  Company Number: FR-009507513-1306FRA011073

PATIENT
  Age: 16 Year
  Sex: Male
  Weight: 85 kg

DRUGS (3)
  1. NORSET [Suspect]
     Indication: DEPRESSION
     Dosage: 15 MG, QD
     Route: 048
     Dates: start: 20130524, end: 20130624
  2. TERCIAN [Concomitant]
     Indication: ANXIETY
     Dosage: 25 MG, TID
     Route: 048
     Dates: start: 20130524
  3. TERCIAN [Concomitant]
     Indication: SLEEP DISORDER

REACTIONS (5)
  - Headache [Recovered/Resolved]
  - Nausea [Recovered/Resolved]
  - Functional gastrointestinal disorder [Unknown]
  - Vertigo [Unknown]
  - Asthenia [Unknown]
